FAERS Safety Report 15858677 (Version 1)
Quarter: 2018Q4

REPORT INFORMATION
  Report Type: Spontaneous
  Country: US (occurrence: US)
  Receive Date: 20181228
  Receipt Date: 20181228
  Transmission Date: 20190205
  Serious: Yes (Other)
  Sender: FDA-Public Use
  Company Number: None

PATIENT
  Sex: Female
  Weight: 71.67 kg

DRUGS (16)
  1. LEVERMIR FLEX TOUCH [Concomitant]
  2. HYDROCHLOROTHIAZIDE. [Concomitant]
     Active Substance: HYDROCHLOROTHIAZIDE
  3. ROSUVASTATIN CAL [Concomitant]
  4. MONTELUKAST SOD [Concomitant]
     Active Substance: MONTELUKAST SODIUM
  5. TRULICITY [Suspect]
     Active Substance: DULAGLUTIDE
     Indication: BLOOD GLUCOSE INCREASED
     Dosage: ?          OTHER STRENGTH:0.75MG/0.5ML;QUANTITY:0.75 MG MILLIGRAM(S);?
     Dates: start: 20180112
  6. CENTRUM SILVER [Concomitant]
     Active Substance: MINERALS\VITAMINS
  7. VITAMIN C [Concomitant]
     Active Substance: ASCORBIC ACID
  8. MUCINEX [Suspect]
     Active Substance: GUAIFENESIN
  9. SR MULTI. VITAMIN [Concomitant]
  10. ANTI ACID GENERIC A NEEDED CHEWS [Concomitant]
  11. LEVOTHYROXINE. [Concomitant]
     Active Substance: LEVOTHYROXINE
  12. FLUTICASONE NASAL SPRAY [Concomitant]
     Active Substance: FLUTICASONE
  13. TRAMADOL HCL [Concomitant]
     Active Substance: TRAMADOL HYDROCHLORIDE
  14. FAMOTODINE [Concomitant]
  15. VITAMIN D3 [Concomitant]
     Active Substance: CHOLECALCIFEROL
  16. GLUCOSAMINE CHONDROITIN [Concomitant]
     Active Substance: CHONDROITIN SULFATE (BOVINE)\GLUCOSAMINE HYDROCHLORIDE

REACTIONS (6)
  - Diarrhoea [None]
  - Ill-defined disorder [None]
  - Vomiting [None]
  - Nausea [None]
  - Abdominal pain upper [None]
  - Influenza like illness [None]
